FAERS Safety Report 23701648 (Version 1)
Quarter: 2024Q2

REPORT INFORMATION
  Report Type: Spontaneous
  Country: US (occurrence: None)
  Receive Date: 20240402
  Receipt Date: 20240402
  Transmission Date: 20240715
  Serious: Yes (Disabling, Other)
  Sender: FDA-Public Use
  Company Number: None

PATIENT
  Age: 58 Year
  Sex: Male
  Weight: 74.25 kg

DRUGS (1)
  1. XOLAIR [Suspect]
     Active Substance: OMALIZUMAB
     Indication: Chronic spontaneous urticaria
     Dates: start: 20240226, end: 20240325

REACTIONS (9)
  - Abdominal pain upper [None]
  - Abdominal distension [None]
  - Head discomfort [None]
  - Headache [None]
  - Flank pain [None]
  - Cough [None]
  - Sinus congestion [None]
  - Pain [None]
  - Inflammation [None]

NARRATIVE: CASE EVENT DATE: 20240301
